FAERS Safety Report 23868170 (Version 1)
Quarter: 2024Q2

REPORT INFORMATION
  Report Type: Spontaneous
  Country: CA (occurrence: CA)
  Receive Date: 20240517
  Receipt Date: 20240517
  Transmission Date: 20240716
  Serious: Yes (Other)
  Sender: FDA-Public Use
  Company Number: CA-SANOFI-02045557

PATIENT
  Age: 66 Year
  Sex: Male

DRUGS (2)
  1. ADMELOG [Suspect]
     Active Substance: INSULIN LISPRO
     Dosage: 50 U
  2. HUMALOG [Concomitant]
     Active Substance: INSULIN LISPRO

REACTIONS (5)
  - Glaucoma [Unknown]
  - Blindness unilateral [Unknown]
  - Blood glucose increased [Unknown]
  - Drug ineffective [Unknown]
  - Device operational issue [Unknown]
